FAERS Safety Report 19097346 (Version 2)
Quarter: 2021Q2

REPORT INFORMATION
  Report Type: Spontaneous
  Country: US (occurrence: US)
  Receive Date: 20210406
  Receipt Date: 20210601
  Transmission Date: 20210717
  Serious: Yes (Death, Hospitalization, Other)
  Sender: FDA-Public Use
  Company Number: US-PFIZER INC-2021269575

PATIENT
  Age: 83 Year
  Sex: Male

DRUGS (17)
  1. LASIX [Concomitant]
     Active Substance: FUROSEMIDE
     Dosage: UNK
     Route: 065
  2. ALLOPURINOL. [Concomitant]
     Active Substance: ALLOPURINOL
     Indication: GOUT
     Dosage: 300 MILLIGRAM, QD
     Route: 048
     Dates: start: 20191122, end: 20210223
  3. ELIQUIS [Suspect]
     Active Substance: APIXABAN
     Indication: CEREBROVASCULAR ACCIDENT PROPHYLAXIS
     Dosage: 2.5 MILLIGRAM, BID
     Route: 048
     Dates: start: 2014, end: 20210223
  4. PLAVIX [Concomitant]
     Active Substance: CLOPIDOGREL BISULFATE
     Indication: ACUTE MYOCARDIAL INFARCTION
     Dosage: 75 MILLIGRAM
     Route: 048
     Dates: start: 20201201, end: 20210223
  5. BUSPIRONE [Concomitant]
     Active Substance: BUSPIRONE HYDROCHLORIDE
     Indication: ANXIETY
     Dosage: 5 MILLIGRAM, PRN
     Route: 048
     Dates: start: 20210110, end: 20210223
  6. AMIODARONE HCL [Suspect]
     Active Substance: AMIODARONE HYDROCHLORIDE
     Indication: ATRIAL FIBRILLATION
     Dosage: 200 MG, DAILY
     Route: 048
     Dates: start: 20160426, end: 20201031
  7. COLLAGENASE [Concomitant]
     Active Substance: COLLAGENASE CLOSTRIDIUM HISTOLYTICUM
     Dosage: UNK
     Route: 065
  8. CARVEDILOL. [Concomitant]
     Active Substance: CARVEDILOL
     Indication: ARTERIOSCLEROSIS
     Dosage: 3.125 MILLIGRAM, BID
     Route: 048
     Dates: start: 20201111, end: 20210223
  9. ATORVASTATIN [Concomitant]
     Active Substance: ATORVASTATIN
     Indication: HYPERLIPIDAEMIA
     Dosage: 40 MILLIGRAM, QD
     Route: 048
     Dates: start: 20200324, end: 20210223
  10. ZOFRAN [Concomitant]
     Active Substance: ONDANSETRON HYDROCHLORIDE
     Dosage: UNK
     Route: 065
  11. COREG [Concomitant]
     Active Substance: CARVEDILOL
     Dosage: UNK
     Route: 065
  12. LIPITOR [Concomitant]
     Active Substance: ATORVASTATIN CALCIUM
     Dosage: UNK
     Route: 065
  13. CITALOPRAM [Concomitant]
     Active Substance: CITALOPRAM HYDROBROMIDE
     Dosage: UNK
     Route: 065
  14. ACETYLSALICYLIC ACID [Concomitant]
     Active Substance: ASPIRIN
     Dosage: UNK
     Route: 065
  15. SYNTHROID [Concomitant]
     Active Substance: LEVOTHYROXINE SODIUM
     Dosage: UNK
     Route: 065
  16. HYDROXYZINE [Concomitant]
     Active Substance: HYDROXYZINE HYDROCHLORIDE
     Dosage: UNK
     Route: 065
  17. PROPYLTHIOURACIL. [Concomitant]
     Active Substance: PROPYLTHIOURACIL
     Dosage: UNK
     Route: 065

REACTIONS (2)
  - Cardiac failure congestive [Fatal]
  - Hyperthyroidism [Fatal]

NARRATIVE: CASE EVENT DATE: 20201130
